FAERS Safety Report 10261471 (Version 2)
Quarter: 2014Q3

REPORT INFORMATION
  Report Type: Spontaneous
  Country: US (occurrence: US)
  Receive Date: 20140626
  Receipt Date: 20140702
  Transmission Date: 20150326
  Serious: No
  Sender: FDA-Public Use
  Company Number: US-PFIZER INC-2014172060

PATIENT
  Age: 83 Year
  Sex: Female
  Weight: 56.69 kg

DRUGS (1)
  1. FLUCONAZOLE. [Suspect]
     Active Substance: FLUCONAZOLE
     Indication: FUNGAL INFECTION
     Dosage: 150 MG, SINGLE
     Route: 048
     Dates: start: 20140618, end: 20140618

REACTIONS (4)
  - Headache [Unknown]
  - Drug ineffective [Unknown]
  - Groin pain [Unknown]
  - Genital burning sensation [Unknown]

NARRATIVE: CASE EVENT DATE: 201406
